FAERS Safety Report 14356963 (Version 1)
Quarter: 2018Q1

REPORT INFORMATION
  Report Type: Spontaneous
  Country: US (occurrence: US)
  Receive Date: 20180105
  Receipt Date: 20180105
  Transmission Date: 20180509
  Serious: No
  Sender: FDA-Public Use
  Company Number: US-PFIZER INC-2018002245

PATIENT
  Age: 7 Year
  Sex: Female
  Weight: 23.59 kg

DRUGS (3)
  1. QUILLIVANT XR [Suspect]
     Active Substance: METHYLPHENIDATE HYDROCHLORIDE
     Indication: ATTENTION DEFICIT/HYPERACTIVITY DISORDER
     Dosage: 2 ML, 1X/DAY
     Route: 048
     Dates: start: 201610
  2. GUANFACINE. [Concomitant]
     Active Substance: GUANFACINE
     Indication: ATTENTION DEFICIT/HYPERACTIVITY DISORDER
     Dosage: UNK, 2X/DAY ^STANDARD KID DOSE^
     Dates: start: 201609
  3. GUANFACINE. [Concomitant]
     Active Substance: GUANFACINE
     Indication: ANXIETY

REACTIONS (1)
  - Weight increased [Unknown]
